FAERS Safety Report 7164304-4 (Version None)
Quarter: 2010Q4

REPORT INFORMATION
  Report Type: 
  Country: None (occurrence: None)
  Receive Date: 20101215
  Receipt Date: 20101203
  Transmission Date: 20110411
  Serious: Yes (Other)
  Sender: FDA-Public Use
  Company Number: PHHY2010US79330

PATIENT
  Sex: Male

DRUGS (10)
  1. EXJADE [Suspect]
     Indication: LYMPHOPROLIFERATIVE DISORDER
     Dosage: 1500MG DAILY
     Route: 048
     Dates: start: 20100713, end: 20100701
  2. AVODART [Concomitant]
     Dosage: UNK
     Dates: start: 20100301
  3. CALCIUM [Concomitant]
  4. CIPRO [Concomitant]
  5. FISH OIL [Concomitant]
  6. FLOMAX [Concomitant]
  7. FUROSEMIDE [Concomitant]
  8. VITAMIN D [Concomitant]
  9. VIDAZA [Concomitant]
  10. ARANESP [Concomitant]
     Dosage: 500 MG

REACTIONS (25)
  - BLOOD ALBUMIN DECREASED [None]
  - BLOOD BILIRUBIN DECREASED [None]
  - BLOOD BILIRUBIN INCREASED [None]
  - BLOOD ERYTHROPOIETIN INCREASED [None]
  - BREAST TENDERNESS [None]
  - CARBON DIOXIDE INCREASED [None]
  - CONSTIPATION [None]
  - DEAFNESS [None]
  - DRUG INTOLERANCE [None]
  - FATIGUE [None]
  - HAEMATOCRIT DECREASED [None]
  - HAEMOGLOBIN DECREASED [None]
  - IRON BINDING CAPACITY TOTAL DECREASED [None]
  - LIPOMA [None]
  - MEAN PLATELET VOLUME DECREASED [None]
  - NEUTROPHIL COUNT DECREASED [None]
  - NIPPLE PAIN [None]
  - PANCYTOPENIA [None]
  - PLATELET COUNT DECREASED [None]
  - PROSTATIC SPECIFIC ANTIGEN DECREASED [None]
  - PROTEIN TOTAL DECREASED [None]
  - RASH [None]
  - RED BLOOD CELL COUNT DECREASED [None]
  - TRANSFERRIN SATURATION INCREASED [None]
  - WHITE BLOOD CELL COUNT DECREASED [None]
